FAERS Safety Report 4961083-3 (Version None)
Quarter: 2006Q1

REPORT INFORMATION
  Report Type: 
  Country: None (occurrence: None)
  Receive Date: 20060327
  Receipt Date: 20060317
  Transmission Date: 20060701
  Serious: Yes (Hospitalization)
  Sender: FDA-Public Use
  Company Number: 200610472BCC

PATIENT
  Age: 52 Year
  Sex: Female

DRUGS (20)
  1. E.S. BAYER BACK + BODY PAIN [Suspect]
     Indication: MYALGIA
     Dosage: SEE IMAGE
     Route: 048
     Dates: start: 20060123, end: 20060128
  2. E.S. BAYER BACK + BODY PAIN [Suspect]
     Indication: PYREXIA
     Dosage: SEE IMAGE
     Route: 048
     Dates: start: 20060123, end: 20060128
  3. E.S. BAYER BACK + BODY PAIN [Suspect]
     Indication: SHOULDER PAIN
     Dosage: SEE IMAGE
     Route: 048
     Dates: start: 20060123, end: 20060128
  4. E.S. BAYER BACK + BODY PAIN [Suspect]
     Indication: MYALGIA
     Dosage: SEE IMAGE
     Route: 048
     Dates: start: 20060118
  5. E.S. BAYER BACK + BODY PAIN [Suspect]
     Indication: PYREXIA
     Dosage: SEE IMAGE
     Route: 048
     Dates: start: 20060118
  6. E.S. BAYER BACK + BODY PAIN [Suspect]
     Indication: SHOULDER PAIN
     Dosage: SEE IMAGE
     Route: 048
     Dates: start: 20060118
  7. AVELOX [Suspect]
     Indication: BACK PAIN
     Dates: start: 20060118
  8. AVELOX [Suspect]
     Indication: INFLUENZA
     Dates: start: 20060118
  9. AVELOX [Suspect]
     Indication: SHOULDER PAIN
     Dates: start: 20060118
  10. BACLOFEN [Concomitant]
  11. METHADONE [Concomitant]
  12. NEXIUM [Concomitant]
  13. CELEXA [Concomitant]
  14. SPIRIVA [Concomitant]
  15. ZELNORM [Concomitant]
  16. NASACORT [Concomitant]
  17. PHENERGAN HCL [Concomitant]
  18. LASIX [Concomitant]
  19. ELAVIL [Concomitant]
  20. KLONOPIN [Concomitant]

REACTIONS (19)
  - BLOOD POTASSIUM DECREASED [None]
  - BLOOD PRESSURE INCREASED [None]
  - DRUG TOXICITY [None]
  - DYSPEPSIA [None]
  - ERYTHEMA [None]
  - FEELING COLD [None]
  - GASTRITIS [None]
  - HOT FLUSH [None]
  - INFECTIVE MYOSITIS [None]
  - INFLUENZA [None]
  - INSOMNIA [None]
  - INTESTINAL SPASM [None]
  - LOSS OF CONSCIOUSNESS [None]
  - MUSCULAR WEAKNESS [None]
  - MYALGIA [None]
  - PYREXIA [None]
  - SWELLING FACE [None]
  - TINNITUS [None]
  - VIRAL INFECTION [None]
